FAERS Safety Report 6942718-2 (Version None)
Quarter: 2010Q3

REPORT INFORMATION
  Report Type: 
  Country: None (occurrence: None)
  Receive Date: 20100823
  Receipt Date: 20100809
  Transmission Date: 20110219
  Serious: Yes (Other)
  Sender: FDA-Public Use
  Company Number: 1000013955

PATIENT
  Age: 80 Year
  Sex: Male

DRUGS (1)
  1. MEMANTINE [Suspect]
     Indication: DEMENTIA ALZHEIMER'S TYPE
     Dosage: 40 PUMPS 10 MG/G (ONCE), ORAL, 20 MG (10 MG, 2 IN 1 D), ORAL
     Route: 048
     Dates: start: 20100501, end: 20100501

REACTIONS (3)
  - ACCIDENTAL OVERDOSE [None]
  - SOMNOLENCE [None]
  - WRONG TECHNIQUE IN DRUG USAGE PROCESS [None]
